FAERS Safety Report 9754179 (Version 1)
Quarter: 2013Q4

REPORT INFORMATION
  Report Type: Spontaneous
  Country: US (occurrence: US)
  Receive Date: 20131213
  Receipt Date: 20131213
  Transmission Date: 20140711
  Serious: No
  Sender: FDA-Public Use
  Company Number: US-GLAXOSMITHKLINE-A1034560A

PATIENT
  Age: 41 Year
  Sex: Male

DRUGS (3)
  1. NICORETTE NICOTINE POLACRILEX MINT LOZENGE, 4MG [Suspect]
     Indication: EX-TOBACCO USER
     Dates: start: 201307, end: 201307
  2. NICODERM CQ [Suspect]
     Indication: EX-TOBACCO USER
     Dates: start: 2013, end: 2013
  3. VICODIN [Concomitant]

REACTIONS (1)
  - Drug ineffective [Unknown]
